FAERS Safety Report 17307986 (Version 1)
Quarter: 2020Q1

REPORT INFORMATION
  Report Type: Spontaneous
  Country: BR (occurrence: BR)
  Receive Date: 20200123
  Receipt Date: 20200123
  Transmission Date: 20200409
  Serious: Yes (Other)
  Sender: FDA-Public Use
  Company Number: BR-ASTRAZENECA-2019SF39663

PATIENT
  Age: 54 Year
  Sex: Male

DRUGS (3)
  1. DURVALUMAB. [Suspect]
     Active Substance: DURVALUMAB
     Indication: BLADDER ADENOCARCINOMA RECURRENT
     Route: 042
  2. DURVALUMAB. [Suspect]
     Active Substance: DURVALUMAB
     Indication: BLADDER ADENOCARCINOMA RECURRENT
     Route: 042
     Dates: start: 201812, end: 201902
  3. DURVALUMAB. [Suspect]
     Active Substance: DURVALUMAB
     Indication: BLADDER ADENOCARCINOMA RECURRENT
     Route: 042

REACTIONS (1)
  - Radiation pneumonitis [Recovered/Resolved]
